FAERS Safety Report 13297200 (Version 1)
Quarter: 2017Q1

REPORT INFORMATION
  Report Type: Spontaneous
  Country: US (occurrence: US)
  Receive Date: 20170306
  Receipt Date: 20170306
  Transmission Date: 20170428
  Serious: Yes (Other)
  Sender: FDA-Public Use
  Company Number: US-JNJFOC-20170216146

PATIENT
  Sex: Female
  Weight: 83.92 kg

DRUGS (10)
  1. RANITIDINE. [Concomitant]
     Active Substance: RANITIDINE
     Indication: GASTROOESOPHAGEAL REFLUX DISEASE
     Route: 048
     Dates: start: 1994
  2. CLIMARA [Concomitant]
     Active Substance: ESTRADIOL
     Indication: HORMONE REPLACEMENT THERAPY
     Route: 062
     Dates: start: 2000
  3. DURAGESIC [Suspect]
     Active Substance: FENTANYL
     Indication: RETROPERITONEAL FIBROSIS
     Route: 062
     Dates: start: 1996
  4. DURAGESIC [Suspect]
     Active Substance: FENTANYL
     Indication: RETROPERITONEAL FIBROSIS
     Route: 062
  5. BENADRYL [Concomitant]
     Active Substance: DIPHENHYDRAMINE HYDROCHLORIDE
     Route: 048
  6. FENTANYL. [Suspect]
     Active Substance: FENTANYL
     Indication: RETROPERITONEAL FIBROSIS
     Route: 062
     Dates: start: 200904
  7. HYDROMORPHONE [Concomitant]
     Active Substance: HYDROMORPHONE
     Indication: PAIN
     Route: 048
  8. LORAZEPAM. [Concomitant]
     Active Substance: LORAZEPAM
     Indication: SLEEP DISORDER
     Route: 048
     Dates: start: 1995
  9. PREDNISONE. [Concomitant]
     Active Substance: PREDNISONE
     Indication: SYSTEMIC LUPUS ERYTHEMATOSUS
     Route: 048
     Dates: start: 1995
  10. NITROGLYCERINE [Concomitant]
     Active Substance: NITROGLYCERIN
     Indication: ARTERIOSPASM CORONARY
     Route: 060
     Dates: start: 1995

REACTIONS (3)
  - Ovarian disorder [Recovered/Resolved]
  - Uterine disorder [Recovered/Resolved]
  - Inadequate analgesia [Not Recovered/Not Resolved]

NARRATIVE: CASE EVENT DATE: 2000
